FAERS Safety Report 14695254 (Version 1)
Quarter: 2018Q1

REPORT INFORMATION
  Report Type: Spontaneous
  Country: US (occurrence: US)
  Receive Date: 20180327
  Receipt Date: 20180327
  Transmission Date: 20180509
  Serious: Yes (Hospitalization)
  Sender: FDA-Public Use
  Company Number: None

PATIENT
  Sex: Female

DRUGS (4)
  1. MATULANE [Concomitant]
     Active Substance: PROCARBAZINE HYDROCHLORIDE
  2. GLEOSTINE [Suspect]
     Active Substance: LOMUSTINE
     Indication: BRAIN NEOPLASM MALIGNANT
     Route: 048
     Dates: start: 20171028
  3. CENTRUM [Concomitant]
     Active Substance: VITAMINS
  4. ZYRTEC [Concomitant]
     Active Substance: CETIRIZINE HYDROCHLORIDE

REACTIONS (4)
  - Dysphemia [None]
  - Feeling abnormal [None]
  - Saccadic eye movement [None]
  - Nausea [None]
